FAERS Safety Report 21771759 (Version 5)
Quarter: 2023Q2

REPORT INFORMATION
  Report Type: Spontaneous
  Country: JP (occurrence: JP)
  Receive Date: 20221223
  Receipt Date: 20230405
  Transmission Date: 20230722
  Serious: Yes (Other)
  Sender: FDA-Public Use
  Company Number: None

PATIENT

DRUGS (5)
  1. VOCABRIA [Suspect]
     Active Substance: CABOTEGRAVIR SODIUM
     Dosage: 600 MG, ONCE A MONTH
     Route: 030
     Dates: start: 20221213
  2. RILPIVIRINE [Suspect]
     Active Substance: RILPIVIRINE
     Dosage: 900 MG, ONCE A MONTH
     Route: 030
     Dates: start: 20221213
  3. ATOMOXETINE HYDROCHLORIDE [Concomitant]
     Active Substance: ATOMOXETINE HYDROCHLORIDE
     Indication: Attention deficit hyperactivity disorder
     Dosage: UNK
  4. ZOLPIDEM TARTRATE [Concomitant]
     Active Substance: ZOLPIDEM TARTRATE
     Dosage: UNK
  5. ABACAVIR SULFATE\DOLUTEGRAVIR SODIUM\LAMIVUDINE [Concomitant]
     Active Substance: ABACAVIR SULFATE\DOLUTEGRAVIR SODIUM\LAMIVUDINE
     Dosage: UNK

REACTIONS (11)
  - Injection site pain [Recovering/Resolving]
  - Injection site inflammation [Recovered/Resolved]
  - Injection site mass [Recovered/Resolved]
  - Drug-induced liver injury [Not Recovered/Not Resolved]
  - Acute hepatitis B [Recovered/Resolved]
  - Hepatitis acute [Recovered/Resolved]
  - Jaundice [Recovered/Resolved]
  - Physical deconditioning [Unknown]
  - Aspartate aminotransferase increased [Unknown]
  - Alanine aminotransferase increased [Unknown]
  - Injection site swelling [Unknown]

NARRATIVE: CASE EVENT DATE: 20221213
